FAERS Safety Report 23263464 (Version 1)
Quarter: 2023Q4

REPORT INFORMATION
  Report Type: Spontaneous
  Country: GB (occurrence: None)
  Receive Date: 20231204
  Receipt Date: 20231204
  Transmission Date: 20240110
  Serious: Yes (Life-Threatening, Disabling, Other)
  Sender: FDA-Public Use
  Company Number: None

PATIENT
  Age: 7 Year
  Sex: Female

DRUGS (1)
  1. HERBALS [Suspect]
     Active Substance: HERBALS

REACTIONS (2)
  - Product formulation issue [None]
  - Product use complaint [None]

NARRATIVE: CASE EVENT DATE: 20231201
